FAERS Safety Report 20288937 (Version 2)
Quarter: 2022Q1

REPORT INFORMATION
  Report Type: Other
  Country: CA (occurrence: CA)
  Receive Date: 20220104
  Receipt Date: 20220120
  Transmission Date: 20220423
  Serious: Yes (Other)
  Sender: FDA-Public Use
  Company Number: CA-CELLTRION INC.-2021CA017836

PATIENT

DRUGS (2)
  1. RITUXIMAB [Suspect]
     Active Substance: RITUXIMAB
     Indication: Granulomatosis with polyangiitis
     Dosage: 1000 MILLIGRAM
     Route: 042
  2. NAPROXEN [Concomitant]
     Active Substance: NAPROXEN

REACTIONS (5)
  - Throat tightness [Recovered/Resolved]
  - Drug hypersensitivity [Recovered/Resolved]
  - Throat irritation [Recovered/Resolved]
  - Intentional product use issue [Recovered/Resolved]
  - Off label use [Recovered/Resolved]
